FAERS Safety Report 7777660-0 (Version None)
Quarter: 2011Q3

REPORT INFORMATION
  Report Type: 
  Country: None (occurrence: None)
  Receive Date: 20110922
  Receipt Date: 20110907
  Transmission Date: 20111222
  Serious: Yes (Other)
  Sender: FDA-Public Use
  Company Number: AUR-APU-2011-04198

PATIENT
  Age: 52 Year
  Sex: Male

DRUGS (1)
  1. LISINOPRIL AND HYDROCHLOROTHIAZIDE (HYDROCHLOROTHIAZIDE, LISINOPRIL) [Suspect]
     Indication: HYPERTENSION

REACTIONS (4)
  - HYPERTENSION [None]
  - DRUG INEFFECTIVE [None]
  - PARAESTHESIA [None]
  - MUSCLE TIGHTNESS [None]
